FAERS Safety Report 7573573-8 (Version None)
Quarter: 2011Q2

REPORT INFORMATION
  Report Type: 
  Country: None (occurrence: None)
  Receive Date: 20110627
  Receipt Date: 20110617
  Transmission Date: 20111010
  Serious: Yes (Hospitalization, Other)
  Sender: FDA-Public Use
  Company Number: BR-US-EMD SERONO, INC.-230065J09BRA

PATIENT
  Sex: Male

DRUGS (3)
  1. HYGROTON [Concomitant]
  2. TOFRANIL [Concomitant]
  3. REBIF [Suspect]
     Indication: RELAPSING-REMITTING MULTIPLE SCLEROSIS
     Dates: start: 20071008

REACTIONS (5)
  - LOWER LIMB FRACTURE [None]
  - HAND FRACTURE [None]
  - FALL [None]
  - PAIN IN EXTREMITY [None]
  - LIMB INJURY [None]
